FAERS Safety Report 7327057-2 (Version None)
Quarter: 2011Q1

REPORT INFORMATION
  Report Type: 
  Country: None (occurrence: None)
  Receive Date: 20110302
  Receipt Date: 20110223
  Transmission Date: 20110831
  Serious: Yes (Death, Other)
  Sender: FDA-Public Use
  Company Number: JP-SANOFI-AVENTIS-2010SA071625

PATIENT
  Age: 80 Year
  Sex: Male
  Weight: 70 kg

DRUGS (15)
  1. PLAVIX [Suspect]
     Route: 048
     Dates: start: 20100502, end: 20100511
  2. HEPARIN [Concomitant]
     Dosage: 10000 UNTS/DAY; 24 HOURS, INTRAVENOUSLY
     Route: 051
     Dates: start: 20100501, end: 20100513
  3. FAMOTIDINE [Concomitant]
     Route: 048
     Dates: start: 20100501
  4. TENORMIN [Concomitant]
     Indication: ATRIAL FIBRILLATION
     Route: 048
     Dates: start: 20100503, end: 20100504
  5. HUMULIN R [Concomitant]
     Indication: HYPERGLYCAEMIA
     Dosage: CONTINUOUS DOSING: 20 UNITS/DAY
     Dates: start: 20100505
  6. FRANDOL [Concomitant]
     Dates: start: 20100501
  7. NITOROL [Concomitant]
     Dosage: CONTINUOUS DOSING; 30 MG/HOUR WITH A SYRINGE-TYPE PUMP
     Route: 042
     Dates: start: 20100501, end: 20100502
  8. MAGNESIUM OXIDE [Concomitant]
     Indication: CONSTIPATION PROPHYLAXIS
     Route: 048
     Dates: start: 20100501, end: 20100503
  9. OTSUKA MV [Concomitant]
     Route: 042
     Dates: start: 20100504
  10. ASPIRIN [Suspect]
     Route: 048
     Dates: start: 20100501, end: 20100510
  11. MEVALOTIN [Suspect]
     Route: 048
     Dates: start: 20100501, end: 20100503
  12. RISPERDONE [Concomitant]
     Indication: PROPHYLAXIS
     Route: 048
     Dates: start: 20100502, end: 20100503
  13. CEFAZOLIN SODIUM [Concomitant]
     Indication: INFECTION PROPHYLAXIS
     Route: 042
     Dates: start: 20100503
  14. LASIX [Concomitant]
     Route: 042
     Dates: start: 20100503, end: 20100520
  15. PLAVIX [Suspect]
     Route: 048
     Dates: start: 20100501, end: 20100501

REACTIONS (6)
  - RENAL IMPAIRMENT [None]
  - TRACHEAL HAEMORRHAGE [None]
  - MULTI-ORGAN FAILURE [None]
  - ANAEMIA [None]
  - HEPATIC FUNCTION ABNORMAL [None]
  - CARDIAC FAILURE [None]
